FAERS Safety Report 5176881-3 (Version None)
Quarter: 2006Q4

REPORT INFORMATION
  Report Type: 
  Country: None (occurrence: None)
  Receive Date: 20061218
  Receipt Date: 20061207
  Transmission Date: 20070319
  Serious: Yes (Other)
  Sender: FDA-Public Use
  Company Number: PHBS2006BR19108

PATIENT
  Age: 67 Year
  Sex: Male
  Weight: 64 kg

DRUGS (5)
  1. VOLTAREN [Suspect]
     Indication: MUSCULOSKELETAL PAIN
     Dosage: 75 MG/DAY
  2. LASIX [Concomitant]
     Indication: FLUID RETENTION
     Dosage: 40 MG/DAY
     Route: 048
  3. DIGOXIN [Concomitant]
     Indication: CARDIAC DISORDER
     Dosage: 5 MG/DAY
     Route: 048
  4. MONOCORDIL [Concomitant]
     Indication: CARDIAC DISORDER
     Dosage: 80 MG/DAY
     Route: 048
  5. INSULIN [Concomitant]
     Indication: DIABETES MELLITUS
     Dosage: 20 ML, UNK
     Route: 048

REACTIONS (2)
  - DISEASE PROGRESSION [None]
  - VISUAL ACUITY REDUCED [None]
